FAERS Safety Report 7958738 (Version 4)
Quarter: 2013Q2

REPORT INFORMATION
  Report Type: Spontaneous
  Country: US (occurrence: US)
  Receive Date: 20110524
  Receipt Date: 20130620
  Transmission Date: 20140414
  Serious: Yes (Life-Threatening, Hospitalization, Congenital Anomaly, Other)
  Sender: FDA-Public Use
  Company Number: US-PFIZER INC-2011105671

PATIENT
  Sex: Female
  Weight: 3 kg

DRUGS (9)
  1. EFFEXOR [Suspect]
     Indication: MAJOR DEPRESSION
     Dosage: 75MG ONE TABLET IN MORNING AND TWO TABLETS IN EVENING
     Route: 064
     Dates: start: 2006
  2. EFFEXOR [Suspect]
     Indication: DEPRESSION
  3. EFFEXOR [Suspect]
     Indication: ANXIETY
  4. EFFEXOR XR [Suspect]
     Indication: DEPRESSION
     Dosage: 75MG ONE CAPSULE IN MORNING AND TWO CAPSULES IN EVENING
     Route: 064
  5. EFFEXOR XR [Suspect]
     Dosage: 75 MG CAPSULES
     Route: 064
     Dates: start: 20010917
  6. EFFEXOR XR [Suspect]
     Dosage: 150 MG CAPSULES
     Route: 064
     Dates: start: 20050408
  7. EFFEXOR XR [Suspect]
     Dosage: UNK
     Route: 064
     Dates: start: 20050715
  8. EFFEXOR XR [Suspect]
     Dosage: 150 MG CAPSULES, ONE CAPSULE BY MOUTH
     Route: 064
     Dates: start: 20060601
  9. PRENATAL VITAMINS [Concomitant]
     Dosage: UNK
     Route: 064

REACTIONS (15)
  - Foetal exposure during pregnancy [Unknown]
  - Ventricular septal defect [Unknown]
  - Atrial septal defect [Unknown]
  - Patent ductus arteriosus [Unknown]
  - Pulmonary oedema [Unknown]
  - Cardiomegaly [Unknown]
  - Cerebral palsy [Unknown]
  - Tricuspid valve incompetence [Unknown]
  - Lung hyperinflation [Unknown]
  - Chest X-ray abnormal [Unknown]
  - Cardiac failure congestive [Unknown]
  - Central nervous system lesion [Unknown]
  - Gross motor delay [Unknown]
  - Hypotonia [Unknown]
  - Speech disorder [Unknown]
